FAERS Safety Report 9863329 (Version 2)
Quarter: 2014Q1

REPORT INFORMATION
  Report Type: Spontaneous
  Country: US (occurrence: US)
  Receive Date: 20140203
  Receipt Date: 20140203
  Transmission Date: 20141002
  Serious: Yes (Other)
  Sender: FDA-Public Use
  Company Number: US-TEVA-450803USA

PATIENT
  Age: 59 Year
  Sex: 0

DRUGS (1)
  1. GLIMEPIRIDE [Suspect]

REACTIONS (2)
  - Coeliac disease [Recovered/Resolved]
  - Rash [Recovered/Resolved]
